FAERS Safety Report 8225763-9 (Version None)
Quarter: 2012Q1

REPORT INFORMATION
  Report Type: 
  Country: None (occurrence: None)
  Receive Date: 20120321
  Receipt Date: 20120315
  Transmission Date: 20120608
  Serious: Yes (Other)
  Sender: FDA-Public Use
  Company Number: IT-ABBOTT-12P-083-0916322-00

PATIENT
  Sex: Female

DRUGS (1)
  1. DEPAKENE [Suspect]
     Indication: CONVULSION
     Dosage: 150 MG DAILY
     Route: 048
     Dates: start: 20120112

REACTIONS (4)
  - HYPERTONIA [None]
  - LOSS OF CONSCIOUSNESS [None]
  - SIGHT DISABILITY [None]
  - VOMITING [None]
